FAERS Safety Report 5117575-X (Version None)
Quarter: 2006Q3

REPORT INFORMATION
  Report Type: 
  Country: None (occurrence: None)
  Receive Date: 20060926
  Receipt Date: 20060906
  Transmission Date: 20061208
  Serious: Yes (Hospitalization, Other)
  Sender: FDA-Public Use
  Company Number: DE200608000290

PATIENT
  Age: 66 Year
  Sex: Female

DRUGS (3)
  1. DULOXETINE HYDROCHLORIDE(DULOXETINE HYDROCHLORIDE UNKNOWN FORMULATION) [Suspect]
     Indication: URINARY INCONTINENCE
     Dosage: 40 MG, ORAL
     Route: 048
     Dates: start: 20060523
  2. L-THYROXIN-NATRIUM (LEVOTHYROXINE SODIUM) [Concomitant]
  3. ASPIRIN [Concomitant]

REACTIONS (5)
  - ALANINE AMINOTRANSFERASE INCREASED [None]
  - ASPARTATE AMINOTRANSFERASE INCREASED [None]
  - BLOOD ALKALINE PHOSPHATASE INCREASED [None]
  - GAMMA-GLUTAMYLTRANSFERASE INCREASED [None]
  - UPPER LIMB FRACTURE [None]
